FAERS Safety Report 9442101 (Version 2)
Quarter: 2013Q4

REPORT INFORMATION
  Report Type: Spontaneous
  Country: DE (occurrence: DE)
  Receive Date: 20130806
  Receipt Date: 20131129
  Transmission Date: 20140711
  Serious: Yes (Other)
  Sender: FDA-Public Use
  Company Number: PHHY2013DE082690

PATIENT
  Sex: Female

DRUGS (3)
  1. GILENYA [Suspect]
     Indication: MULTIPLE SCLEROSIS
     Dosage: 0.5 MG, QD
     Route: 048
     Dates: start: 201105, end: 20130813
  2. GILENYA [Suspect]
     Dosage: 0.5 MG, QD
     Route: 048
     Dates: start: 20130926
  3. GABAPENTIN [Concomitant]
     Dosage: 300 MG, DAILY
     Route: 048

REACTIONS (3)
  - Cytomegalovirus colitis [Recovering/Resolving]
  - Gastrointestinal disorder [Recovering/Resolving]
  - Intestinal ulcer [Recovering/Resolving]
